FAERS Safety Report 11718609 (Version 1)
Quarter: 2015Q4

REPORT INFORMATION
  Report Type: Spontaneous
  Country: ES (occurrence: ES)
  Receive Date: 20151110
  Receipt Date: 20151110
  Transmission Date: 20160304
  Serious: Yes (Hospitalization)
  Sender: FDA-Public Use
  Company Number: ES-ACTAVIS-2015-24005

PATIENT
  Age: 50 Year
  Sex: Female
  Weight: 74 kg

DRUGS (2)
  1. TRASTUZUMAB [Suspect]
     Active Substance: TRASTUZUMAB
     Indication: BREAST CANCER
     Dosage: 600 MG, CYCLICAL; EVERY 21 DAYS
     Route: 058
     Dates: start: 20151015, end: 20151015
  2. DOCETAXEL ACTAVIS [Suspect]
     Active Substance: DOCETAXEL
     Indication: BREAST CANCER
     Dosage: 190 MG, CYCLICAL; EVERY 21 DAYS
     Route: 042
     Dates: start: 20151015, end: 20151015

REACTIONS (1)
  - Febrile neutropenia [Recovering/Resolving]

NARRATIVE: CASE EVENT DATE: 20151015
